FAERS Safety Report 6823842-1 (Version None)
Quarter: 2010Q3

REPORT INFORMATION
  Report Type: 
  Country: None (occurrence: None)
  Receive Date: 20100708
  Receipt Date: 20060913
  Transmission Date: 20110219
  Serious: No
  Sender: FDA-Public Use
  Company Number: US-PFIZER INC-2006113056

PATIENT
  Sex: Female
  Weight: 52.16 kg

DRUGS (4)
  1. CHANTIX [Suspect]
     Indication: SMOKING CESSATION THERAPY
     Dates: start: 20060904
  2. ATIVAN [Concomitant]
  3. MORPHINE SULFATE [Concomitant]
  4. ESTRATEST [Concomitant]

REACTIONS (1)
  - NAUSEA [None]
